FAERS Safety Report 23184616 (Version 4)
Quarter: 2024Q3

REPORT INFORMATION
  Report Type: Report from Study
  Country: JP (occurrence: JP)
  Receive Date: 20231115
  Receipt Date: 20240717
  Transmission Date: 20241017
  Serious: Yes (Death, Other)
  Sender: AMGEN
  Company Number: JP-KYOWAKIRIN-2020AKK021369

PATIENT
  Age: 77 Year
  Sex: Male

DRUGS (45)
  1. DARBEPOETIN ALFA [Suspect]
     Active Substance: DARBEPOETIN ALFA
     Indication: Myelodysplastic syndrome
     Dosage: 180 MICROGRAM, QWK
     Route: 058
     Dates: start: 20190813, end: 20190813
  2. DARBEPOETIN ALFA [Suspect]
     Active Substance: DARBEPOETIN ALFA
     Dosage: 240 MICROGRAM
     Route: 058
     Dates: start: 20190401, end: 20190401
  3. DARBEPOETIN ALFA [Suspect]
     Active Substance: DARBEPOETIN ALFA
     Dosage: 240 MICROGRAM, QWK
     Route: 058
     Dates: start: 20190415, end: 20190520
  4. DARBEPOETIN ALFA [Suspect]
     Active Substance: DARBEPOETIN ALFA
     Dosage: 180 MICROGRAM, QWK
     Route: 058
     Dates: start: 20190527, end: 20190701
  5. DARBEPOETIN ALFA [Suspect]
     Active Substance: DARBEPOETIN ALFA
     Dosage: 240 MICROGRAM, QWK
     Route: 058
     Dates: start: 20190708, end: 20190805
  6. DARBEPOETIN ALFA [Suspect]
     Active Substance: DARBEPOETIN ALFA
     Dosage: 240 MICROGRAM, QWK
     Route: 058
     Dates: start: 20190820, end: 20191007
  7. DARBEPOETIN ALFA [Suspect]
     Active Substance: DARBEPOETIN ALFA
     Dosage: 240 MICROGRAM, QWK
     Route: 058
     Dates: start: 20191021, end: 20191202
  8. DARBEPOETIN ALFA [Suspect]
     Active Substance: DARBEPOETIN ALFA
     Dosage: 120 MICROGRAM
     Route: 058
     Dates: start: 20191209, end: 20191209
  9. DARBEPOETIN ALFA [Suspect]
     Active Substance: DARBEPOETIN ALFA
     Dosage: 240 MICROGRAM, QWK
     Route: 058
     Dates: start: 20191218, end: 20191227
  10. DARBEPOETIN ALFA [Suspect]
     Active Substance: DARBEPOETIN ALFA
     Dosage: 240 MICROGRAM, Q2WK
     Route: 058
     Dates: start: 20200106, end: 20200217
  11. DARBEPOETIN ALFA [Suspect]
     Active Substance: DARBEPOETIN ALFA
     Dosage: 240 MICROGRAM, Q4WK
     Route: 058
     Dates: start: 20200309, end: 20200406
  12. DARBEPOETIN ALFA [Suspect]
     Active Substance: DARBEPOETIN ALFA
     Dosage: 240 MICROGRAM, Q3WK
     Route: 058
     Dates: start: 20200511, end: 20200601
  13. DARBEPOETIN ALFA [Suspect]
     Active Substance: DARBEPOETIN ALFA
     Dosage: 240 MICROGRAM
     Route: 058
     Dates: start: 20200629, end: 20200629
  14. DARBEPOETIN ALFA [Suspect]
     Active Substance: DARBEPOETIN ALFA
     Dosage: 240 MICROGRAM, Q4WK
     Route: 058
     Dates: start: 20200803, end: 20201026
  15. DARBEPOETIN ALFA [Suspect]
     Active Substance: DARBEPOETIN ALFA
     Dosage: 240 MICROGRAM, Q4WK
     Route: 058
     Dates: start: 20201130, end: 20201228
  16. DARBEPOETIN ALFA [Suspect]
     Active Substance: DARBEPOETIN ALFA
     Dosage: 240 MICROGRAM, Q4WK
     Route: 058
     Dates: start: 20210118, end: 20220704
  17. DARBEPOETIN ALFA [Suspect]
     Active Substance: DARBEPOETIN ALFA
     Dosage: 240 MICROGRAM, Q4WK
     Route: 058
     Dates: start: 20220725, end: 20220822
  18. DARBEPOETIN ALFA [Suspect]
     Active Substance: DARBEPOETIN ALFA
     Dosage: 240 MICROGRAM, Q3WK
     Route: 058
     Dates: start: 20220912, end: 20221003
  19. DARBEPOETIN ALFA [Suspect]
     Active Substance: DARBEPOETIN ALFA
     Dosage: 240 MICROGRAM, Q3WK
     Route: 058
     Dates: start: 20221031, end: 20221121
  20. DARBEPOETIN ALFA [Suspect]
     Active Substance: DARBEPOETIN ALFA
     Dosage: 240 MICROGRAM, QWK
     Route: 058
     Dates: start: 20221219, end: 20221226
  21. DARBEPOETIN ALFA [Suspect]
     Active Substance: DARBEPOETIN ALFA
     Dosage: 240 MICROGRAM, Q4WK
     Route: 058
     Dates: start: 20230130, end: 20230619
  22. DARBEPOETIN ALFA [Suspect]
     Active Substance: DARBEPOETIN ALFA
     Dosage: 240 MICROGRAM
     Route: 058
     Dates: start: 20230710
  23. METHENOLONE [Concomitant]
     Active Substance: METHENOLONE
     Indication: Myelodysplastic syndrome
     Dosage: 10 MILLIGRAM
     Route: 048
     Dates: start: 20190401, end: 20190414
  24. METHENOLONE [Concomitant]
     Active Substance: METHENOLONE
     Dosage: 10 MILLIGRAM
     Route: 048
     Dates: start: 20190422, end: 20230724
  25. POLAPREZINC [Concomitant]
     Active Substance: POLAPREZINC
     Indication: Zinc deficiency
     Dosage: 150 MILLIGRAM, UNK
     Route: 048
     Dates: start: 20190401, end: 20190414
  26. POLAPREZINC [Concomitant]
     Active Substance: POLAPREZINC
     Dosage: 150 MILLIGRAM
     Route: 048
     Dates: start: 20190430, end: 20190506
  27. POLAPREZINC [Concomitant]
     Active Substance: POLAPREZINC
     Dosage: 150 MILLIGRAM
     Route: 048
     Dates: start: 20190708, end: 20191027
  28. ALUMINUM HYDROXIDE\MAGNESIUM HYDROXIDE [Concomitant]
     Active Substance: ALUMINUM HYDROXIDE\MAGNESIUM HYDROXIDE
     Indication: Product used for unknown indication
     Dosage: 3.6 GRAM
     Route: 048
     Dates: start: 20190401, end: 20230724
  29. BIO-THREE [Concomitant]
     Active Substance: HERBALS
     Indication: Product used for unknown indication
     Dosage: 3 DOSAGE FORM
     Route: 048
     Dates: start: 20190401, end: 20230817
  30. FOLIC ACID [Concomitant]
     Active Substance: FOLIC ACID
     Indication: Product used for unknown indication
     Dosage: 10 MILLIGRAM
     Route: 048
     Dates: start: 20190408, end: 20190429
  31. CYCLOSPORINE [Concomitant]
     Active Substance: CYCLOSPORINE
     Indication: Myelodysplastic syndrome
     Dosage: 50 MILLIGRAM
     Route: 048
     Dates: start: 20190415, end: 20191227
  32. ZINC [Concomitant]
     Active Substance: ZINC
     Indication: Zinc deficiency
     Dosage: 50 MILLIGRAM
     Route: 048
     Dates: start: 20190507, end: 20190526
  33. ZINC [Concomitant]
     Active Substance: ZINC
     Dosage: 100 MILLIGRAM
     Route: 048
     Dates: start: 20190527, end: 20190623
  34. ZINC [Concomitant]
     Active Substance: ZINC
     Dosage: 100 MILLIGRAM
     Route: 048
     Dates: start: 20190917, end: 20230724
  35. METHYLCOBALAMIN [Concomitant]
     Active Substance: METHYLCOBALAMIN
     Indication: Product used for unknown indication
     Dosage: 1500 MICROGRAM
     Route: 048
     Dates: start: 20190507, end: 20190526
  36. METHYLCOBALAMIN [Concomitant]
     Active Substance: METHYLCOBALAMIN
     Dosage: 1500 MICROGRAM
     Route: 048
     Dates: start: 20190816, end: 20190904
  37. METHYLCOBALAMIN [Concomitant]
     Active Substance: METHYLCOBALAMIN
     Indication: Product used for unknown indication
     Dosage: 500 MICROGRAM
     Route: 065
     Dates: start: 20190527, end: 20200203
  38. FEBUXOSTAT [Concomitant]
     Active Substance: FEBUXOSTAT
     Indication: Blood uric acid increased
     Dosage: 10 MILLIGRAM
     Route: 048
     Dates: start: 20220620, end: 20230724
  39. FEBUXOSTAT [Concomitant]
     Active Substance: FEBUXOSTAT
     Indication: Prophylaxis
     Dosage: UNK
     Route: 065
  40. PREDONINE [Concomitant]
     Active Substance: PREDNISOLONE
     Indication: Myelodysplastic syndrome
     Dosage: 10 MILLIGRAM
     Route: 048
     Dates: start: 20191218, end: 20230803
  41. PREDONINE [Concomitant]
     Active Substance: PREDNISOLONE
     Dosage: 10 MILLIGRAM
     Route: 048
     Dates: start: 20230804, end: 20230817
  42. SULFAMETHOXAZOLE\TRIMETHOPRIM [Concomitant]
     Active Substance: SULFAMETHOXAZOLE\TRIMETHOPRIM
     Indication: Product used for unknown indication
     Dosage: 2 GRAM, 2 TIMES/WK
     Route: 048
     Dates: start: 20200120, end: 20230724
  43. LANSOPRAZOLE [Concomitant]
     Active Substance: LANSOPRAZOLE
     Indication: Product used for unknown indication
     Dosage: 15 MILLIGRAM
     Route: 048
     Dates: start: 20200803, end: 20230803
  44. CARBAZOCHROME SODIUM SULFONATE [Concomitant]
     Active Substance: CARBAZOCHROME SODIUM SULFONATE
     Indication: Product used for unknown indication
     Dosage: 30 MILLIGRAM
     Route: 048
     Dates: start: 20230731, end: 20230810
  45. OMEPRAZOLE [Concomitant]
     Active Substance: OMEPRAZOLE
     Indication: Product used for unknown indication
     Dosage: 20 MILLIGRAM
     Route: 065
     Dates: start: 20230804, end: 20230817

REACTIONS (7)
  - Renal impairment [Not Recovered/Not Resolved]
  - Myelodysplastic syndrome [Fatal]
  - Sudden hearing loss [Unknown]
  - Vitamin B12 deficiency [Recovered/Resolved]
  - Blood uric acid increased [Recovered/Resolved]
  - Haematuria [Not Recovered/Not Resolved]
  - Gastric mucosal lesion [Unknown]

NARRATIVE: CASE EVENT DATE: 20190507
